FAERS Safety Report 7741930-2 (Version None)
Quarter: 2011Q3

REPORT INFORMATION
  Report Type: 
  Country: None (occurrence: None)
  Receive Date: 20110912
  Receipt Date: 20110831
  Transmission Date: 20111222
  Serious: Yes (Other)
  Sender: FDA-Public Use
  Company Number: KR-JNJFOC-20110902695

PATIENT
  Age: 83 Year
  Sex: Female

DRUGS (1)
  1. DURAGESIC-100 [Suspect]
     Indication: BACK PAIN
     Dosage: 12.5 +25 UG/HR
     Route: 062
     Dates: start: 20110806

REACTIONS (8)
  - GENERALISED OEDEMA [None]
  - PRURITUS [None]
  - MEDICATION ERROR [None]
  - EYE OEDEMA [None]
  - AMNESIA [None]
  - DRUG INEFFECTIVE [None]
  - DIZZINESS [None]
  - CONSTIPATION [None]
